FAERS Safety Report 14056364 (Version 2)
Quarter: 2017Q4

REPORT INFORMATION
  Report Type: Report from Study
  Country: FR (occurrence: FR)
  Receive Date: 20171006
  Receipt Date: 20171026
  Transmission Date: 20180321
  Serious: Yes (Death, Hospitalization, Other)
  Sender: FDA-Public Use
  Company Number: FR-BRISTOL-MYERS SQUIBB COMPANY-BMS-2017-089587

PATIENT
  Age: 78 Year
  Sex: Male
  Weight: 92 kg

DRUGS (6)
  1. ENANTONE LP [Suspect]
     Active Substance: LEUPROLIDE ACETATE
     Indication: PROSTATIC ADENOMA
     Dosage: UNK
     Route: 065
     Dates: start: 2009, end: 20170130
  2. CALCIPARINE [Concomitant]
     Active Substance: HEPARIN CALCIUM
     Indication: CORONARY ARTERY DISEASE
     Dosage: UNK
     Route: 065
     Dates: end: 20170130
  3. CASODEX [Suspect]
     Active Substance: BICALUTAMIDE
     Indication: PROSTATIC ADENOMA
     Dosage: UNK
     Route: 065
     Dates: start: 2009, end: 20170130
  4. ENTECAVIR. [Suspect]
     Active Substance: ENTECAVIR
     Indication: HEPATITIS B VIRUS TEST
     Dosage: 0.5 MG, Q2WK
     Route: 065
     Dates: start: 20150113, end: 20170130
  5. PREVISCAN                          /00261401/ [Concomitant]
     Active Substance: PENTOXIFYLLINE
     Indication: CORONARY ARTERY DISEASE
     Dosage: UNK
     Route: 065
     Dates: end: 20170130
  6. LASILIX                            /00032601/ [Concomitant]
     Active Substance: FUROSEMIDE
     Indication: CORONARY ARTERY DISEASE
     Dosage: UNK
     Route: 065
     Dates: end: 20170130

REACTIONS (5)
  - Arteriovenous fistula site complication [Recovering/Resolving]
  - Cardiac flutter [Fatal]
  - Bronchitis [Unknown]
  - Acute coronary syndrome [Fatal]
  - Prostate cancer recurrent [Unknown]

NARRATIVE: CASE EVENT DATE: 20161020
